FAERS Safety Report 15800838 (Version 3)
Quarter: 2019Q1

REPORT INFORMATION
  Report Type: Spontaneous
  Country: US (occurrence: US)
  Receive Date: 20190109
  Receipt Date: 20190301
  Transmission Date: 20190417
  Serious: No
  Sender: FDA-Public Use
  Company Number: US-BRISTOL-MYERS SQUIBB COMPANY-BMS-2019-001175

PATIENT
  Sex: Female
  Weight: 97.97 kg

DRUGS (2)
  1. ELIQUIS [Suspect]
     Active Substance: APIXABAN
     Indication: DEEP VEIN THROMBOSIS
     Dosage: 5 MG, BID
     Route: 048
     Dates: start: 20180503
  2. METFORMIN [Concomitant]
     Active Substance: METFORMIN HYDROCHLORIDE
     Indication: PRODUCT USED FOR UNKNOWN INDICATION
     Dosage: UNK
     Route: 065

REACTIONS (8)
  - Cough [Unknown]
  - Burning sensation [Unknown]
  - Urinary tract infection [Recovered/Resolved]
  - Pain in extremity [Unknown]
  - Vulvovaginal pruritus [Unknown]
  - Bladder prolapse [Unknown]
  - Urine odour abnormal [Unknown]
  - Product container issue [Unknown]
